FAERS Safety Report 8905612 (Version 2)
Quarter: 2013Q1

REPORT INFORMATION
  Report Type: Report from Study
  Country: JP (occurrence: JP)
  Receive Date: 20121113
  Receipt Date: 20130208
  Transmission Date: 20140127
  Serious: Yes (Other)
  Sender: FDA-Public Use
  Company Number: JP-009507513-1211JPN004435

PATIENT
  Age: 47 Year
  Sex: Male
  Weight: 80 kg

DRUGS (8)
  1. PEGINTRON [Suspect]
     Indication: CHRONIC HEPATITIS C
     Dosage: 15 UG/KG/WEEK
     Route: 058
     Dates: start: 20120905, end: 20121111
  2. PEGINTRON [Suspect]
     Dosage: 15 UG/KG/WEEK
     Dates: start: 20121119
  3. REBETOL [Suspect]
     Indication: CHRONIC HEPATITIS C
     Dosage: UNK UNK, QD
     Route: 048
     Dates: start: 20120905, end: 20121111
  4. REBETOL [Suspect]
     Dosage: UNK UNK, QD
     Route: 048
     Dates: start: 20121126
  5. TELAVIC [Suspect]
     Indication: CHRONIC HEPATITIS C
     Dosage: 2250MG,DAILY
     Route: 048
     Dates: start: 20120905, end: 20121014
  6. TELAVIC [Suspect]
     Dosage: 1500 MG, QD
     Route: 048
     Dates: start: 20121015, end: 20121104
  7. TELAVIC [Suspect]
     Dosage: 750 MG, QD
     Route: 048
     Dates: start: 20121105, end: 20121112
  8. FEBURIC [Concomitant]
     Indication: HYPERURICAEMIA
     Dosage: 40 MG, QD
     Route: 048

REACTIONS (1)
  - Rash [Recovering/Resolving]
